FAERS Safety Report 16739285 (Version 1)
Quarter: 2019Q3

REPORT INFORMATION
  Report Type: Spontaneous
  Country: ES (occurrence: ES)
  Receive Date: 20190826
  Receipt Date: 20190826
  Transmission Date: 20191005
  Serious: Yes (Death, Hospitalization)
  Sender: FDA-Public Use
  Company Number: ES-TEVA-2019-ES-1096345

PATIENT
  Age: 72 Year
  Sex: Male

DRUGS (1)
  1. ALOPURINOL (318A) [Suspect]
     Active Substance: ALLOPURINOL
     Route: 065
     Dates: start: 20181211, end: 20190115

REACTIONS (1)
  - Drug reaction with eosinophilia and systemic symptoms [Unknown]

NARRATIVE: CASE EVENT DATE: 20190111
